FAERS Safety Report 15706288 (Version 1)
Quarter: 2018Q4

REPORT INFORMATION
  Report Type: Report from Study
  Country: CN (occurrence: CN)
  Receive Date: 20181210
  Receipt Date: 20181210
  Transmission Date: 20190205
  Serious: Yes (Hospitalization)
  Sender: FDA-Public Use
  Company Number: CN-BAYER-2018-222135

PATIENT
  Age: 30 Year
  Sex: Female
  Weight: 68 kg

DRUGS (37)
  1. BENDAMUSTINE [Suspect]
     Active Substance: BENDAMUSTINE
     Indication: B-CELL LYMPHOMA RECURRENT
     Dosage: 136 MG, QD
     Route: 042
     Dates: start: 20180918, end: 20180918
  2. OMEPRAZOLE. [Concomitant]
     Active Substance: OMEPRAZOLE
     Indication: GASTROINTESTINAL DISORDER PROPHYLAXIS
     Dosage: 40 MG, QD
     Route: 042
     Dates: start: 20181106, end: 20181106
  3. OMEPRAZOLE. [Concomitant]
     Active Substance: OMEPRAZOLE
     Indication: GASTROINTESTINAL DISORDER PROPHYLAXIS
     Dosage: 40 MG, QD
     Route: 042
     Dates: start: 20181120, end: 20181121
  4. TROPISETRON [Concomitant]
     Active Substance: TROPISETRON
     Indication: PROPHYLAXIS OF NAUSEA AND VOMITING
     Dosage: 4 MG, QD
     Route: 042
     Dates: start: 20180918, end: 20180919
  5. RITUXIMAB. [Suspect]
     Active Substance: RITUXIMAB
     Indication: B-CELL LYMPHOMA RECURRENT
     Dosage: 566 MG, QD
     Route: 042
     Dates: start: 20180918, end: 20180918
  6. BENDAMUSTINE [Suspect]
     Active Substance: BENDAMUSTINE
     Indication: B-CELL LYMPHOMA RECURRENT
     Dosage: 135 MG, QD
     Route: 042
     Dates: start: 20181024, end: 20181024
  7. MAGNESIUM ISOGLYCYRRHIZINATE [Concomitant]
     Active Substance: MAGNESIUM ISOGLYCYRRHIZINATE
     Indication: LIVER DISORDER
     Dosage: 200 MG, QD
     Route: 042
     Dates: start: 20180925, end: 20180925
  8. DIPHENHYDRAMINE. [Concomitant]
     Active Substance: DIPHENHYDRAMINE
     Indication: PROPHYLAXIS
     Dosage: 40 MG, QD
     Route: 042
     Dates: start: 20180918, end: 20180918
  9. BENDAMUSTINE [Suspect]
     Active Substance: BENDAMUSTINE
     Indication: B-CELL LYMPHOMA RECURRENT
     Dosage: 135 MG, QD
     Route: 042
     Dates: start: 20181120, end: 20181120
  10. OMEPRAZOLE. [Concomitant]
     Active Substance: OMEPRAZOLE
     Indication: GASTROINTESTINAL DISORDER PROPHYLAXIS
     Dosage: 40 MG, QD
     Route: 042
     Dates: start: 20180918, end: 20180919
  11. MAGNESIUM ISOGLYCYRRHIZINATE [Concomitant]
     Active Substance: MAGNESIUM ISOGLYCYRRHIZINATE
     Indication: LIVER DISORDER
     Dosage: 200 MG, QD
     Route: 042
     Dates: start: 20180918, end: 20180919
  12. COPANLISIB. [Suspect]
     Active Substance: COPANLISIB
     Indication: B-CELL LYMPHOMA RECURRENT
     Dosage: 60 MG, QD
     Route: 042
     Dates: start: 20181023, end: 20181023
  13. PREDNISONE ACETATE [Concomitant]
     Active Substance: PREDNISONE ACETATE
     Indication: PLATELET COUNT DECREASED
     Dosage: 5 MG, TID
     Route: 048
     Dates: start: 20180802, end: 20180916
  14. TROPISETRON [Concomitant]
     Active Substance: TROPISETRON
     Indication: PROPHYLAXIS OF NAUSEA AND VOMITING
     Dosage: 4 MG, QD
     Route: 042
     Dates: start: 20181020, end: 20181020
  15. MAGNESIUM ISOGLYCYRRHIZINATE [Concomitant]
     Active Substance: MAGNESIUM ISOGLYCYRRHIZINATE
     Indication: LIVER DISORDER
     Dosage: 200 MG, QD
     Route: 042
     Dates: start: 20181120, end: 20181121
  16. RITUXIMAB. [Suspect]
     Active Substance: RITUXIMAB
     Indication: B-CELL LYMPHOMA RECURRENT
     Dosage: 563 MG, QD
     Route: 042
     Dates: start: 20181023, end: 20181023
  17. BENDAMUSTINE [Suspect]
     Active Substance: BENDAMUSTINE
     Indication: B-CELL LYMPHOMA RECURRENT
     Dosage: 136 MG, QD
     Route: 042
     Dates: start: 20180919, end: 20180919
  18. BENDAMUSTINE [Suspect]
     Active Substance: BENDAMUSTINE
     Indication: B-CELL LYMPHOMA RECURRENT
     Dosage: 135 MG, QD
     Route: 042
     Dates: start: 20181023, end: 20181023
  19. ENTECAVIR. [Concomitant]
     Active Substance: ENTECAVIR
     Indication: VIRAL HEPATITIS CARRIER
     Dosage: 0.5 MG, QD
     Route: 048
     Dates: start: 2013
  20. OMEPRAZOLE. [Concomitant]
     Active Substance: OMEPRAZOLE
     Indication: GASTROINTESTINAL DISORDER PROPHYLAXIS
     Dosage: 40 MG, QD
     Route: 042
     Dates: start: 20180925, end: 20180925
  21. TROPISETRON [Concomitant]
     Active Substance: TROPISETRON
     Indication: PROPHYLAXIS OF NAUSEA AND VOMITING
     Dosage: 4 MG, QD
     Route: 042
     Dates: start: 20181120, end: 20181121
  22. BORAX [BORIC ACID] [Concomitant]
     Indication: PROPHYLAXIS
     Dosage: 300 ML, QD
     Route: 048
     Dates: start: 20181024
  23. COPANLISIB. [Suspect]
     Active Substance: COPANLISIB
     Indication: B-CELL LYMPHOMA RECURRENT
     Dosage: 45 MG, QD
     Route: 042
     Dates: start: 20181031, end: 20181031
  24. CELEBREX [Concomitant]
     Active Substance: CELECOXIB
     Indication: PROPHYLAXIS
     Dosage: 200 MG, QD
     Route: 048
     Dates: start: 20180918, end: 20180919
  25. MAGNESIUM ISOGLYCYRRHIZINATE [Concomitant]
     Active Substance: MAGNESIUM ISOGLYCYRRHIZINATE
     Indication: LIVER DISORDER
     Dosage: 200 MG, QD
     Route: 042
     Dates: start: 20181106, end: 20181106
  26. RECOMBINANT HUMAN INTERLEUKIN-11 [Concomitant]
     Active Substance: OPRELVEKIN
     Indication: PROPHYLAXIS AGAINST GASTROINTESTINAL ULCER
     Dosage: 2 MG, QD
     Route: 048
     Dates: start: 20181024, end: 20181026
  27. COPANLISIB. [Suspect]
     Active Substance: COPANLISIB
     Indication: B-CELL LYMPHOMA RECURRENT
     Dosage: 60 MG, QD
     Route: 042
     Dates: start: 20180925, end: 20180925
  28. COPANLISIB. [Suspect]
     Active Substance: COPANLISIB
     Indication: B-CELL LYMPHOMA RECURRENT
     Dosage: 45 MG, QD
     Route: 042
     Dates: start: 20181106, end: 20181106
  29. RITUXIMAB. [Suspect]
     Active Substance: RITUXIMAB
     Indication: B-CELL LYMPHOMA RECURRENT
     Dosage: 563 MG, QD
     Route: 042
     Dates: start: 20181120, end: 20181120
  30. TROPISETRON [Concomitant]
     Active Substance: TROPISETRON
     Indication: GASTROINTESTINAL DISORDER PROPHYLAXIS
     Dosage: 4 MG, QD
     Route: 042
     Dates: start: 20180925, end: 20180925
  31. TROPISETRON [Concomitant]
     Active Substance: TROPISETRON
     Indication: PROPHYLAXIS OF NAUSEA AND VOMITING
     Dosage: 4 MG, QD
     Route: 042
     Dates: start: 20181106, end: 20181106
  32. MAGNESIUM ISOGLYCYRRHIZINATE [Concomitant]
     Active Substance: MAGNESIUM ISOGLYCYRRHIZINATE
     Indication: LIVER DISORDER
     Dosage: 200 MG, QD
     Route: 042
     Dates: start: 20181031, end: 20181031
  33. BICYCLOL [Concomitant]
     Active Substance: BICYCLOL
     Indication: LIVER DISORDER
     Dosage: 50 MG, QD
     Route: 048
     Dates: start: 20180925
  34. COPANLISIB. [Suspect]
     Active Substance: COPANLISIB
     Indication: B-CELL LYMPHOMA RECURRENT
     Dosage: 60 MG, QD
     Route: 042
     Dates: start: 20180918, end: 20180918
  35. COPANLISIB. [Suspect]
     Active Substance: COPANLISIB
     Indication: B-CELL LYMPHOMA RECURRENT
     Dosage: 45 MG, QD
     Route: 042
     Dates: start: 20181120, end: 20181120
  36. BENDAMUSTINE [Suspect]
     Active Substance: BENDAMUSTINE
     Indication: B-CELL LYMPHOMA RECURRENT
     Dosage: 135 MG, QD
     Route: 042
     Dates: start: 20181121, end: 20181121
  37. DIPHENHYDRAMINE. [Concomitant]
     Active Substance: DIPHENHYDRAMINE
     Indication: PROPHYLAXIS
     Dosage: 40 MG, QD
     Route: 042
     Dates: start: 20181120, end: 20181120

REACTIONS (1)
  - Pyrexia [Recovered/Resolved]

NARRATIVE: CASE EVENT DATE: 20181129
